FAERS Safety Report 7148729-9 (Version None)
Quarter: 2010Q4

REPORT INFORMATION
  Report Type: 
  Country: None (occurrence: None)
  Receive Date: 20101209
  Receipt Date: 20101202
  Transmission Date: 20110411
  Serious: Yes (Other)
  Sender: FDA-Public Use
  Company Number: US-ROCHE-746433

PATIENT
  Sex: Male

DRUGS (2)
  1. AVASTIN [Suspect]
     Indication: COLORECTAL CANCER
     Route: 065
     Dates: start: 20090101
  2. FOLFOX REGIMEN [Suspect]
     Indication: COLORECTAL CANCER
     Route: 065
     Dates: start: 20090101

REACTIONS (2)
  - HEPATECTOMY [None]
  - PROTEINURIA [None]
